FAERS Safety Report 10028374 (Version 1)
Quarter: 2014Q1

REPORT INFORMATION
  Report Type: Report from Study
  Country: CO (occurrence: CO)
  Receive Date: 20140321
  Receipt Date: 20140321
  Transmission Date: 20141002
  Serious: Yes (Death)
  Sender: FDA-Public Use
  Company Number: CO-SA-2014SA032164

PATIENT
  Age: 72 Year
  Sex: Male

DRUGS (4)
  1. LANTUS [Suspect]
     Indication: DIABETES MELLITUS
     Dosage: DOSE:23 UNIT(S)
     Route: 058
     Dates: start: 201305, end: 20140222
  2. INSULIN, REGULAR [Suspect]
     Indication: DIABETES MELLITUS
     Route: 058
     Dates: start: 201305, end: 20140222
  3. LOSARTAN [Concomitant]
     Indication: HYPERTENSION
     Route: 048
     Dates: end: 20140222
  4. AMLODIPINE [Concomitant]
     Indication: HYPERTENSION
     Route: 048
     Dates: end: 20140222

REACTIONS (1)
  - Cardio-respiratory arrest [Fatal]
